FAERS Safety Report 23382809 (Version 2)
Quarter: 2024Q1

REPORT INFORMATION
  Report Type: Spontaneous
  Country: PE (occurrence: PE)
  Receive Date: 20240109
  Receipt Date: 20240315
  Transmission Date: 20240409
  Serious: Yes (Other)
  Sender: FDA-Public Use
  Company Number: PE-TEVA-VS-3141354

PATIENT
  Age: 64 Year
  Sex: Male

DRUGS (1)
  1. DUTASTERIDE\TAMSULOSIN [Suspect]
     Active Substance: DUTASTERIDE\TAMSULOSIN
     Indication: Benign prostatic hyperplasia
     Route: 065

REACTIONS (2)
  - Hepatitis acute [Unknown]
  - Hepatocellular injury [Unknown]
